FAERS Safety Report 10071178 (Version 1)
Quarter: 2014Q2

REPORT INFORMATION
  Report Type: Spontaneous
  Country: IT (occurrence: FR)
  Receive Date: 20140410
  Receipt Date: 20140410
  Transmission Date: 20141212
  Serious: Yes (Hospitalization)
  Sender: FDA-Public Use
  Company Number: FR-FRI-1000066214

PATIENT
  Age: 61 Year
  Sex: Male

DRUGS (10)
  1. NEBIVOLOL [Suspect]
     Dosage: 2.5 MG
     Route: 048
     Dates: start: 20110101
  2. XARELTO [Suspect]
     Indication: VENOUS THROMBOSIS
     Dosage: 30 MG
     Route: 048
     Dates: start: 20140207, end: 20140306
  3. KARDEGIC [Suspect]
     Dosage: 75 MG
     Route: 048
     Dates: start: 20110101
  4. INEXIUM [Suspect]
     Dosage: 40 MG
     Route: 048
  5. TAHOR [Suspect]
     Dosage: 10 MG
     Route: 048
     Dates: start: 20110101
  6. SPIRONOLACTONE [Concomitant]
     Route: 048
  7. AZARGA [Concomitant]
  8. ACUPAN [Concomitant]
  9. STILNOX [Concomitant]
     Dosage: 7.5 MG
     Route: 048
  10. DOLIPRANE [Concomitant]
     Dosage: 3 GM
     Route: 048

REACTIONS (1)
  - Haemarthrosis [Not Recovered/Not Resolved]
